FAERS Safety Report 6744125-4 (Version None)
Quarter: 2010Q2

REPORT INFORMATION
  Report Type: 
  Country: None (occurrence: None)
  Receive Date: 20100527
  Receipt Date: 20100517
  Transmission Date: 20101027
  Serious: Yes (Hospitalization)
  Sender: FDA-Public Use
  Company Number: B0653120A

PATIENT
  Sex: Male
  Weight: 63 kg

DRUGS (3)
  1. LAMICTAL [Suspect]
     Route: 048
     Dates: start: 20100101, end: 20100108
  2. URBANYL [Concomitant]
     Route: 048
     Dates: start: 20100101
  3. SECTRAL [Concomitant]
     Indication: HYPERTENSION
     Route: 065

REACTIONS (3)
  - ALTERED STATE OF CONSCIOUSNESS [None]
  - ENCEPHALOPATHY [None]
  - SOMNOLENCE [None]
